FAERS Safety Report 8998498 (Version 2)
Quarter: 2017Q2

REPORT INFORMATION
  Report Type: Spontaneous
  Country: US (occurrence: US)
  Receive Date: 20130103
  Receipt Date: 20170413
  Transmission Date: 20170830
  Serious: Yes (Other)
  Sender: FDA-Public Use
  Company Number: US-ASTRAZENECA-2012SE95570

PATIENT
  Age: 774 Month
  Sex: Female
  Weight: 52.6 kg

DRUGS (2)
  1. ARIMIDEX [Suspect]
     Active Substance: ANASTROZOLE
     Indication: BREAST CANCER
     Route: 048
     Dates: start: 201207, end: 201212
  2. VITAMINS NOS [Concomitant]
     Active Substance: VITAMINS

REACTIONS (13)
  - Hypertension [Unknown]
  - Abdominal pain upper [Recovered/Resolved]
  - Nausea [Recovered/Resolved]
  - Hot flush [Recovering/Resolving]
  - Dyspnoea exertional [Recovered/Resolved]
  - Fatigue [Recovering/Resolving]
  - Breast cancer recurrent [Unknown]
  - Breast cancer metastatic [Unknown]
  - Asthenia [Unknown]
  - Mood swings [Recovering/Resolving]
  - Dyspnoea [Unknown]
  - Listless [Recovering/Resolving]
  - Vasodilatation [Recovering/Resolving]

NARRATIVE: CASE EVENT DATE: 201210
